FAERS Safety Report 20526026 (Version 2)
Quarter: 2022Q1

REPORT INFORMATION
  Report Type: Report from Study
  Country: US (occurrence: US)
  Receive Date: 20220228
  Receipt Date: 20220308
  Transmission Date: 20220423
  Serious: Yes (Hospitalization, Other)
  Sender: FDA-Public Use
  Company Number: US-VERTEX PHARMACEUTICALS-2022-000675

PATIENT
  Sex: Male
  Weight: 67 kg

DRUGS (2)
  1. TRIKAFTA [Suspect]
     Active Substance: ELEXACAFTOR\IVACAFTOR\TEZACAFTOR
     Indication: Cystic fibrosis
     Dosage: 2 ORANGE TABLETS IN THE AM AND 1 BLUE TABLET IN THE PM
     Route: 048
     Dates: start: 20210302
  2. TRIKAFTA [Suspect]
     Active Substance: ELEXACAFTOR\IVACAFTOR\TEZACAFTOR
     Dosage: REDUCED, ONLY AM TABS, NO EVENING TABS
     Route: 048

REACTIONS (7)
  - Dyspepsia [Unknown]
  - Gastric ulcer [Recovered/Resolved]
  - Haematemesis [Recovering/Resolving]
  - Ulcer haemorrhage [Recovering/Resolving]
  - Gastrointestinal disorder [Unknown]
  - Gastric pH decreased [Unknown]
  - Abdominal distension [Recovering/Resolving]

NARRATIVE: CASE EVENT DATE: 20210101
